FAERS Safety Report 8559851-4 (Version None)
Quarter: 2012Q3

REPORT INFORMATION
  Report Type: 
  Country: None (occurrence: None)
  Receive Date: 20120802
  Receipt Date: 20120720
  Transmission Date: 20120928
  Serious: Yes (Life-Threatening, Hospitalization)
  Sender: FDA-Public Use
  Company Number: GR-COVIDIEN/TYCO HEALTHCARE/MALLINCKRODT-T201202873

PATIENT
  Age: 61 Year
  Sex: Female

DRUGS (5)
  1. PENNSAID [Suspect]
     Indication: JOINT INJURY
     Dosage: 75 MG, QD
     Route: 048
  2. ENALAPRIL MALEATE [Concomitant]
     Dosage: 20 MG, QD
  3. METFORMIN HYDROCHLORIDE [Suspect]
     Dosage: 1700 MG, QD
  4. HYDROCHLOROTHIAZIDE [Concomitant]
     Dosage: 12.5 MG/DAY
  5. GLIMEPIRIDE [Concomitant]
     Dosage: 4 MG, QD

REACTIONS (2)
  - LACTIC ACIDOSIS [None]
  - RENAL FAILURE ACUTE [None]
